FAERS Safety Report 25647810 (Version 1)
Quarter: 2025Q3

REPORT INFORMATION
  Report Type: Spontaneous
  Country: EU (occurrence: EU)
  Receive Date: 20250806
  Receipt Date: 20250806
  Transmission Date: 20251021
  Serious: Yes (Other)
  Sender: SANDOZ
  Company Number: EU-SANDOZ-SDZ2025AT055950

PATIENT
  Sex: Male

DRUGS (1)
  1. ALLOPURINOL [Suspect]
     Active Substance: ALLOPURINOL
     Indication: Product used for unknown indication
     Route: 065

REACTIONS (4)
  - Loss of consciousness [Unknown]
  - Cardiac pacemaker insertion [Unknown]
  - Chest discomfort [Unknown]
  - Malaise [Unknown]
